FAERS Safety Report 12809349 (Version 2)
Quarter: 2016Q4

REPORT INFORMATION
  Report Type: Spontaneous
  Country: JP (occurrence: JP)
  Receive Date: 20161004
  Receipt Date: 20161109
  Transmission Date: 20170207
  Serious: No
  Sender: FDA-Public Use
  Company Number: PHJP2016JP027758

PATIENT
  Age: 58 Year
  Sex: Female

DRUGS (2)
  1. NEORAL [Suspect]
     Active Substance: CYCLOSPORINE
     Indication: MYASTHENIA GRAVIS
     Dosage: 30 MG, QD
     Route: 048
     Dates: start: 2013, end: 201608
  2. NEORAL [Suspect]
     Active Substance: CYCLOSPORINE
     Dosage: 20 MG, QD
     Route: 048
     Dates: start: 201608

REACTIONS (3)
  - Platelet count decreased [Unknown]
  - White blood cell count decreased [Unknown]
  - Liver function test increased [Unknown]
